FAERS Safety Report 8990546 (Version 1)
Quarter: 2012Q4

REPORT INFORMATION
  Report Type: 
  Country: US (occurrence: US)
  Receive Date: 20121228
  Receipt Date: 20121228
  Transmission Date: 20130627
  Serious: No
  Sender: FDA-Public Use
  Company Number: US-009507513-1212USA010727

PATIENT
  Sex: Male

DRUGS (7)
  1. VICTRELIS [Suspect]
     Dosage: 800 mg, tid
     Route: 048
  2. RIBAPAK [Suspect]
     Dosage: 1000 per day
  3. PEGASYS [Suspect]
  4. METFORMIN [Concomitant]
  5. LISINOPRIL [Concomitant]
  6. TRAMADOL HYDROCHLORIDE [Concomitant]
  7. METHADONE HYDROCHLORIDE [Concomitant]

REACTIONS (4)
  - Constipation [Unknown]
  - Rash [Unknown]
  - Rash [Unknown]
  - Nausea [Unknown]
